FAERS Safety Report 23945379 (Version 1)
Quarter: 2024Q2

REPORT INFORMATION
  Report Type: Spontaneous
  Country: RU (occurrence: RU)
  Receive Date: 20240606
  Receipt Date: 20240606
  Transmission Date: 20240716
  Serious: Yes (Other)
  Sender: FDA-Public Use
  Company Number: RU-PFIZER INC-PV202400072283

PATIENT
  Age: 66 Year
  Sex: Female

DRUGS (1)
  1. LORLATINIB [Suspect]
     Active Substance: LORLATINIB
     Indication: Lung cancer metastatic
     Dosage: UNK
     Dates: start: 20240320

REACTIONS (1)
  - Type V hyperlipidaemia [Recovered/Resolved]

NARRATIVE: CASE EVENT DATE: 20240415
